FAERS Safety Report 4381826-X (Version None)
Quarter: 2004Q2

REPORT INFORMATION
  Report Type: 
  Country: None (occurrence: None)
  Receive Date: 20040603
  Receipt Date: 20030709
  Transmission Date: 20050107
  Serious: Yes (Other)
  Sender: FDA-Public Use
  Company Number: 200316302US

PATIENT

DRUGS (5)
  1. LOVENOX [Suspect]
     Indication: THROMBOSIS
  2. WARFARIN SODIUM [Concomitant]
  3. HIRUDIN [Concomitant]
  4. HEPARIN [Concomitant]
  5. PREDNISONE [Concomitant]

REACTIONS (1)
  - THROMBOCYTOPENIA [None]
